FAERS Safety Report 6537768-4 (Version None)
Quarter: 2010Q1

REPORT INFORMATION
  Report Type: 
  Country: None (occurrence: None)
  Receive Date: 20100111
  Receipt Date: 20091229
  Transmission Date: 20100710
  Serious: Yes (Hospitalization)
  Sender: FDA-Public Use
  Company Number: B0623717A

PATIENT
  Age: 49 Year
  Sex: Male

DRUGS (4)
  1. LAMIVUDINE [Suspect]
     Indication: HIV INFECTION
     Dates: start: 20060801
  2. FOSAMPRENAVIR (FORMULATION UNKNOWN) (GENERIC) (FOSAMPRENAVIR) [Suspect]
     Indication: HIV INFECTION
     Dates: start: 20060801
  3. TENOFOVIR DISOPROXIL FUMARATE [Suspect]
     Indication: HIV INFECTION
     Dates: start: 20060801
  4. RITONAVIR [Suspect]
     Indication: HIV INFECTION
     Dates: start: 20060801

REACTIONS (6)
  - ARTHRITIS [None]
  - DRUG INEFFECTIVE [None]
  - FOLLICULITIS [None]
  - IMMUNE RECONSTITUTION SYNDROME [None]
  - OEDEMA PERIPHERAL [None]
  - PAIN IN EXTREMITY [None]
